FAERS Safety Report 14532099 (Version 4)
Quarter: 2023Q1

REPORT INFORMATION
  Report Type: Spontaneous
  Country: HU (occurrence: HU)
  Receive Date: 20180214
  Receipt Date: 20230327
  Transmission Date: 20230417
  Serious: Yes (Hospitalization, Other)
  Sender: FDA-Public Use
  Company Number: PHHY2018HU024187

PATIENT
  Age: 39 Year
  Sex: Female
  Weight: 65 kg

DRUGS (14)
  1. DOXORUBICIN HYDROCHLORIDE [Suspect]
     Active Substance: DOXORUBICIN HYDROCHLORIDE
     Indication: Acute myeloid leukaemia
     Dosage: 90 MG, ON DAYS 2. 4., REINDUCTION BISHOP THERAPY
     Route: 042
     Dates: start: 201204
  2. AMOXICILLIN [Suspect]
     Active Substance: AMOXICILLIN
     Indication: Product used for unknown indication
     Dosage: UNK
     Route: 065
  3. CYTARABINE [Suspect]
     Active Substance: CYTARABINE
     Indication: Acute myeloid leukaemia
     Dosage: 190 MG, QD (AS INDUCTION THERAPY 7+3, RECEIVED FOR 7 DAYS ) (24 HR INFUSION)
     Route: 042
     Dates: start: 201203
  4. CYTARABINE [Suspect]
     Active Substance: CYTARABINE
     Dosage: 5.5 G, BID (ON DAYS 1. 3. 5., REINDUCTION BISHOP THERAPY, HIGH DOSE)
     Route: 042
     Dates: start: 201204
  5. CYTARABINE [Suspect]
     Active Substance: CYTARABINE
     Dosage: 5.4 G, BID (ON THE DAYS 1. 3. 5. AS CONSOLIDATION, HIGH DOSE, HDA)
     Route: 042
     Dates: start: 201205
  6. CYTARABINE [Suspect]
     Active Substance: CYTARABINE
     Dosage: 3.4 G, BID (ON DAYS 1-5, FLAG-IDA)
     Route: 042
     Dates: start: 201401
  7. FLUDARABINE [Suspect]
     Active Substance: FLUDARABINE PHOSPHATE
     Indication: Acute myeloid leukaemia
     Dosage: 50 MG, UNK
     Route: 065
     Dates: start: 201401
  8. DAUNORUBICIN [Suspect]
     Active Substance: DAUNORUBICIN
     Indication: Acute myeloid leukaemia
     Dosage: 110 MG, AS INDUCTION THERAPY 7+3, FOR 3 DAYS
     Route: 042
     Dates: start: 201203
  9. IDARUBICIN [Suspect]
     Active Substance: IDARUBICIN
     Indication: Acute myeloid leukaemia
     Dosage: 14 MG ON DAYS 1-3, FLAG-IDA
     Route: 042
     Dates: start: 201401
  10. GRANULOCYTE COLONY-STIMULATING FACTOR NOS [Suspect]
     Active Substance: GRANULOCYTE COLONY-STIMULATING FACTOR NOS
     Indication: Acute myeloid leukaemia
     Dosage: UNK (FLAG-IDA)
     Route: 065
     Dates: start: 201401
  11. FLUDARA [Suspect]
     Active Substance: FLUDARABINE PHOSPHATE
     Indication: Acute myeloid leukaemia
     Dosage: 50 MG ON DAYS 1-5, FLAG-IDA
     Route: 065
     Dates: start: 201401
  12. ALLOPURINOL [Concomitant]
     Active Substance: ALLOPURINOL
     Indication: Product used for unknown indication
     Dosage: UNK
     Route: 065
  13. SULFAMETHOXAZOLE\TRIMETHOPRIM [Concomitant]
     Active Substance: SULFAMETHOXAZOLE\TRIMETHOPRIM
     Indication: Product used for unknown indication
     Route: 065
  14. ACYCLOVIR [Concomitant]
     Active Substance: ACYCLOVIR
     Indication: Product used for unknown indication
     Route: 065

REACTIONS (13)
  - Tumour lysis syndrome [Recovered/Resolved]
  - Bronchopulmonary aspergillosis [Recovered/Resolved]
  - Respiratory failure [Recovered/Resolved]
  - Febrile neutropenia [Recovered/Resolved]
  - Pneumonia [Recovered/Resolved]
  - Neoplasm recurrence [Unknown]
  - Aspergillus infection [Unknown]
  - Acute myeloid leukaemia recurrent [Unknown]
  - Pyrexia [Recovered/Resolved]
  - Pyrexia [Recovered/Resolved]
  - Pyrexia [Recovered/Resolved]
  - Pyrexia [Recovered/Resolved]
  - Pyrexia [Unknown]

NARRATIVE: CASE EVENT DATE: 20120206
